FAERS Safety Report 4512391-1 (Version None)
Quarter: 2004Q4

REPORT INFORMATION
  Report Type: 
  Country: None (occurrence: None)
  Receive Date: 20041123
  Receipt Date: 20041109
  Transmission Date: 20050328
  Serious: Yes (Hospitalization)
  Sender: FDA-Public Use
  Company Number: 2004-BP-11595RO

PATIENT
  Age: 27 Year
  Sex: Male

DRUGS (1)
  1. AZATHIOPRINE [Suspect]
     Indication: COLITIS

REACTIONS (14)
  - ABDOMINAL PAIN [None]
  - ARTHRALGIA [None]
  - BLOOD AMYLASE INCREASED [None]
  - DRUG HYPERSENSITIVITY [None]
  - LEUKOCYTOSIS [None]
  - LIPASE INCREASED [None]
  - LYMPHOPENIA [None]
  - MALAISE [None]
  - NASAL CONGESTION [None]
  - OCULAR DISCOMFORT [None]
  - ODYNOPHAGIA [None]
  - PYREXIA [None]
  - UVEITIS [None]
  - VIRAL INFECTION [None]
